FAERS Safety Report 8570198-2 (Version None)
Quarter: 2012Q3

REPORT INFORMATION
  Report Type: 
  Country: None (occurrence: None)
  Receive Date: 20120803
  Receipt Date: 20120801
  Transmission Date: 20120928
  Serious: Yes (Death, Hospitalization)
  Sender: FDA-Public Use
  Company Number: JP-B.I. PHARMACEUTICALS,INC./RIDGEFIELD-2012-BP-14559NB

PATIENT
  Age: 78 Year
  Sex: Male

DRUGS (3)
  1. UFT [Suspect]
     Indication: LUNG NEOPLASM MALIGNANT
     Route: 065
  2. PRADAXA [Suspect]
     Indication: ATRIAL FIBRILLATION
     Dosage: 300 MG
     Route: 048
  3. ALLOPURINOL [Suspect]
     Indication: GOUT
     Route: 065

REACTIONS (1)
  - INTERSTITIAL LUNG DISEASE [None]
